FAERS Safety Report 10236990 (Version 1)
Quarter: 2014Q2

REPORT INFORMATION
  Report Type: Report from Study
  Country: CO (occurrence: CO)
  Receive Date: 20140613
  Receipt Date: 20140613
  Transmission Date: 20141212
  Serious: Yes (Hospitalization)
  Sender: FDA-Public Use
  Company Number: CO-ABBVIE-14K-036-1247126-00

PATIENT
  Age: 4 Month
  Sex: Female
  Weight: 3.2 kg

DRUGS (1)
  1. SYNAGIS [Suspect]
     Indication: BRONCHOPULMONARY DYSPLASIA
     Route: 030
     Dates: start: 20140203, end: 20140412

REACTIONS (1)
  - Bronchiolitis [Recovering/Resolving]
